FAERS Safety Report 16172621 (Version 3)
Quarter: 2022Q3

REPORT INFORMATION
  Report Type: Spontaneous
  Country: FR (occurrence: FR)
  Receive Date: 20190409
  Receipt Date: 20220712
  Transmission Date: 20221026
  Serious: Yes (Other)
  Sender: FDA-Public Use
  Company Number: None

PATIENT
  Age: 64 Year
  Sex: Female
  Weight: 70 kg

DRUGS (11)
  1. THYMOGLOBULINE [Suspect]
     Active Substance: LAPINE T-LYMPHOCYTE IMMUNE GLOBULIN
     Indication: Prophylaxis
     Dosage: 180 MG, QD
     Route: 041
     Dates: start: 20190302, end: 20190303
  2. DEXCHLORPHENIRAMINE MALEATE [Suspect]
     Active Substance: DEXCHLORPHENIRAMINE MALEATE
     Indication: Premedication
     Dosage: 1 DF, QD
     Route: 041
     Dates: start: 20190302, end: 20190303
  3. FLUDARABINE PHOSPHATE [Suspect]
     Active Substance: FLUDARABINE PHOSPHATE
     Indication: Myelofibrosis
     Dosage: 52.5 MG, QD
     Route: 041
     Dates: start: 20190227, end: 20190303
  4. ACETAMINOPHEN [Suspect]
     Active Substance: ACETAMINOPHEN
     Indication: Pain
     Dosage: 2 G, QD
     Route: 041
     Dates: start: 20190302, end: 20190305
  5. VORICONAZOLE [Suspect]
     Active Substance: VORICONAZOLE
     Indication: Product used for unknown indication
     Dosage: 900 MG, QD
     Route: 041
     Dates: start: 20190227
  6. HYDROCORTISONE [Suspect]
     Active Substance: HYDROCORTISONE
     Indication: Premedication
     Dosage: 1 DF, QD
     Route: 041
     Dates: start: 20190302, end: 20190303
  7. APREPITANT [Suspect]
     Active Substance: APREPITANT
     Dosage: 1 DF, QD
     Route: 048
     Dates: start: 20190228, end: 20190302
  8. ONDANSETRON HYDROCHLORIDE [Suspect]
     Active Substance: ONDANSETRON HYDROCHLORIDE
     Indication: Nausea
     Dosage: 16 MG, QD
     Route: 041
     Dates: start: 20190227, end: 20190304
  9. PRIMPERAN [Suspect]
     Active Substance: METOCLOPRAMIDE HYDROCHLORIDE
     Indication: Nausea
     Dosage: 1 DF, QD
     Route: 041
     Dates: start: 20190302, end: 20190307
  10. BUSULFAN [Suspect]
     Active Substance: BUSULFAN
     Indication: Myelofibrosis
     Dosage: 228 MG, QD
     Route: 041
     Dates: start: 20190227, end: 20190303
  11. LEVOTHYROXINE [Concomitant]
     Active Substance: LEVOTHYROXINE
     Route: 065

REACTIONS (2)
  - Hepatic failure [Recovered/Resolved]
  - Hepatic cytolysis [Recovered/Resolved]

NARRATIVE: CASE EVENT DATE: 20190304
